FAERS Safety Report 8504862-8 (Version None)
Quarter: 2012Q2

REPORT INFORMATION
  Report Type: 
  Country: None (occurrence: None)
  Receive Date: 20120405
  Receipt Date: 20100824
  Transmission Date: 20120825
  Serious: Yes (Other)
  Sender: FDA-Public Use
  Company Number: PHHY2010US55787

PATIENT
  Age: 56 Year
  Sex: Male
  Weight: 102.5 kg

DRUGS (2)
  1. RECLAST [Suspect]
     Dosage: INJECTION NOS
  2. REMICADE [Suspect]
     Dosage: INTRAVENOUS
     Route: 042

REACTIONS (1)
  - ANAPHYLACTIC REACTION [None]
